FAERS Safety Report 4543927-2 (Version None)
Quarter: 2005Q1

REPORT INFORMATION
  Report Type: 
  Country: None (occurrence: None)
  Receive Date: 20050103
  Receipt Date: 20030915
  Transmission Date: 20050727
  Serious: Yes (Hospitalization)
  Sender: FDA-Public Use
  Company Number: GXKR2003GB00460

PATIENT
  Age: 53 Year
  Sex: Female

DRUGS (8)
  1. FUROSEMIDE (NGX) (FUROSEMIDE) [Suspect]
     Indication: ATRIAL FIBRILLATION
  2. PHENOXYMETHYLPENICILLIN [Suspect]
     Indication: ATRIAL FIBRILLATION
  3. WARFARIN SODIUM [Suspect]
  4. FERROUS SULFATE TAB [Suspect]
  5. DIGOXIN [Suspect]
     Indication: ATRIAL FIBRILLATION
  6. AMIODARONE HCL [Suspect]
     Indication: ATRIAL FIBRILLATION
  7. AMILORIDE HCL [Suspect]
     Indication: ATRIAL FIBRILLATION
  8. METOPROLOL TARTRATE [Suspect]
     Indication: ATRIAL FIBRILLATION

REACTIONS (2)
  - DYSPNOEA [None]
  - PALPITATIONS [None]
